FAERS Safety Report 20840029 (Version 1)
Quarter: 2022Q2

REPORT INFORMATION
  Report Type: Other
  Country: NO (occurrence: None)
  Receive Date: 20220517
  Receipt Date: 20220517
  Transmission Date: 20220721
  Serious: Yes (Other)
  Sender: FDA-Public Use
  Company Number: NO-Merck Healthcare KGaA-9279871

PATIENT
  Age: 41 Year
  Sex: Female

DRUGS (1)
  1. CLADRIBINE [Interacting]
     Active Substance: CLADRIBINE
     Indication: Relapsing-remitting multiple sclerosis
     Dosage: WEEKLY CURES
     Route: 048
     Dates: start: 20200831

REACTIONS (1)
  - Multiple sclerosis relapse [Recovering/Resolving]

NARRATIVE: CASE EVENT DATE: 20200907
